FAERS Safety Report 6861194-1 (Version None)
Quarter: 2010Q3

REPORT INFORMATION
  Report Type: 
  Country: None (occurrence: None)
  Receive Date: 20100720
  Receipt Date: 20100712
  Transmission Date: 20110219
  Serious: Yes (Other)
  Sender: FDA-Public Use
  Company Number: DE-JNJFOC-20100700499

PATIENT
  Sex: Female

DRUGS (1)
  1. VERMOX [Suspect]
     Indication: CESTODE INFECTION
     Route: 048
     Dates: start: 20100623, end: 20100626

REACTIONS (2)
  - ABNORMAL FAECES [None]
  - HAEMATOCHEZIA [None]
